FAERS Safety Report 16867503 (Version 1)
Quarter: 2019Q3

REPORT INFORMATION
  Report Type: Spontaneous
  Country: US (occurrence: US)
  Receive Date: 20190930
  Receipt Date: 20190930
  Transmission Date: 20191005
  Serious: No
  Sender: FDA-Public Use
  Company Number: US-CIPLA LTD.-2019US05164

PATIENT

DRUGS (3)
  1. TESTOSTERONE. [Suspect]
     Active Substance: TESTOSTERONE
     Dosage: 60 MG OR ML, ONCE A WEEK (UNKNOWN MANUFACTURER)
     Route: 030
     Dates: start: 2019
  2. TESTOSTERONE. [Suspect]
     Active Substance: TESTOSTERONE
     Indication: PRODUCT USED FOR UNKNOWN INDICATION
     Dosage: UNK (UNKNOWN MANUFACTURER)
     Route: 030
  3. TESTOSTERONE. [Suspect]
     Active Substance: TESTOSTERONE
     Dosage: 140 MG OR ML, ONCE A WEEK (UNKNOWN MANUFACTURER)
     Route: 030

REACTIONS (2)
  - Drug ineffective [Unknown]
  - Extra dose administered [Unknown]

NARRATIVE: CASE EVENT DATE: 20190612
